FAERS Safety Report 5385419-7 (Version None)
Quarter: 2007Q3

REPORT INFORMATION
  Report Type: 
  Country: None (occurrence: None)
  Receive Date: 20070706
  Receipt Date: 20070706
  Transmission Date: 20080115
  Serious: Yes (Hospitalization)
  Sender: FDA-Public Use
  Company Number: None

PATIENT
  Age: 57 Year
  Sex: Female
  Weight: 60.3284 kg

DRUGS (13)
  1. PHOSPHOSODA FLAVOR NOT SPECIFIED [Suspect]
     Indication: COLONOSCOPY
     Dosage: 45 ML;X1;PO
     Route: 048
  2. ZOCOR [Concomitant]
  3. VASOTEC [Concomitant]
  4. SYNTHROID [Concomitant]
  5. CARDIZEM CD [Concomitant]
  6. AVALIDE [Concomitant]
  7. ALLEGRA [Concomitant]
  8. METOCLOPRAMIDE HYDROCHLORIDE [Concomitant]
  9. CATAPRES-TTS-1 [Concomitant]
  10. EVISTA [Concomitant]
  11. HUMALOG [Concomitant]
  12. CALTRATE 600 PLUS VIT D [Concomitant]
  13. MULTI VITAMINS WITH IRON [Concomitant]

REACTIONS (5)
  - DECREASED APPETITE [None]
  - DYSKINESIA [None]
  - NAUSEA [None]
  - POST PROCEDURAL COMPLICATION [None]
  - RENAL FAILURE ACUTE [None]
